FAERS Safety Report 17030941 (Version 1)
Quarter: 2019Q4

REPORT INFORMATION
  Report Type: Spontaneous
  Country: FR (occurrence: FR)
  Receive Date: 20191114
  Receipt Date: 20191114
  Transmission Date: 20200122
  Serious: Yes (Other)
  Sender: FDA-Public Use
  Company Number: FR-ROCHE-2464279

PATIENT
  Sex: Male

DRUGS (1)
  1. ALECENSA [Suspect]
     Active Substance: ALECTINIB HYDROCHLORIDE
     Indication: NON-SMALL CELL LUNG CANCER
     Dosage: IN THE MORNING AND IN THE EVENING
     Route: 048
     Dates: start: 20190601

REACTIONS (5)
  - Confusional state [Recovering/Resolving]
  - Fatigue [Recovering/Resolving]
  - Disorientation [Recovering/Resolving]
  - Vertigo [Recovering/Resolving]
  - Fall [Unknown]
